FAERS Safety Report 15953451 (Version 1)
Quarter: 2019Q1

REPORT INFORMATION
  Report Type: Spontaneous
  Country: CO (occurrence: CO)
  Receive Date: 20190213
  Receipt Date: 20190213
  Transmission Date: 20190417
  Serious: Yes (Other)
  Sender: FDA-Public Use
  Company Number: CO-MYLANLABS-2019M1010695

PATIENT
  Sex: Female

DRUGS (3)
  1. CABERGOLINE. [Suspect]
     Active Substance: CABERGOLINE
     Indication: HYPERPROLACTINAEMIA
     Dosage: TWO TIMES IN A WEEK
     Route: 065
     Dates: start: 2012
  2. BROMOCRIPTINE [Suspect]
     Active Substance: BROMOCRIPTINE
     Indication: HYPERPROLACTINAEMIA
     Dosage: 1.25 MILLIGRAM, QD
     Route: 065
     Dates: start: 2002, end: 2004
  3. BROMOCRIPTINE [Suspect]
     Active Substance: BROMOCRIPTINE
     Dosage: UNK
     Route: 065
     Dates: start: 2007, end: 2012

REACTIONS (3)
  - Systemic lupus erythematosus [Recovering/Resolving]
  - Sjogren^s syndrome [Unknown]
  - Hypothalamo-pituitary disorder [Unknown]
